FAERS Safety Report 11809192 (Version 1)
Quarter: 2015Q4

REPORT INFORMATION
  Report Type: Spontaneous
  Country: CN (occurrence: CN)
  Receive Date: 20151207
  Receipt Date: 20151207
  Transmission Date: 20160305
  Serious: Yes (Life-Threatening, Other)
  Sender: FDA-Public Use
  Company Number: PHHY2015CN157921

PATIENT
  Age: 38 Year
  Sex: Male
  Weight: 55 kg

DRUGS (3)
  1. SEBIVO [Suspect]
     Active Substance: TELBIVUDINE
     Indication: CHRONIC HEPATITIS B
     Dosage: 600 MG, QD
     Route: 048
     Dates: start: 20150108, end: 20151108
  2. BARACLUDE [Suspect]
     Active Substance: ENTECAVIR
     Indication: CHRONIC HEPATITIS B
     Dosage: 0.5 MG, QD
     Route: 048
     Dates: start: 20151108, end: 20151125
  3. PURE BAKING SODA [Concomitant]
     Active Substance: SODIUM BICARBONATE
     Indication: PRODUCT USED FOR UNKNOWN INDICATION
     Route: 065

REACTIONS (11)
  - Rhabdomyolysis [Unknown]
  - Oedema peripheral [Unknown]
  - Blood bilirubin increased [Unknown]
  - Thrombocytopenia [Unknown]
  - Poor peripheral circulation [Unknown]
  - Coronary artery disease [Unknown]
  - Pneumonia [Unknown]
  - Heart sounds abnormal [Unknown]
  - Anuria [Unknown]
  - Cardiac disorder [Unknown]
  - Hyperthyroidism [Unknown]

NARRATIVE: CASE EVENT DATE: 20151118
